FAERS Safety Report 7498524-6 (Version None)
Quarter: 2011Q2

REPORT INFORMATION
  Report Type: 
  Country: None (occurrence: None)
  Receive Date: 20110516
  Receipt Date: 20110503
  Transmission Date: 20111010
  Serious: Yes (Hospitalization)
  Sender: FDA-Public Use
  Company Number: 2011MA004891

PATIENT
  Age: 57 Year
  Sex: Male

DRUGS (4)
  1. CEFPODOXIME PROXETIL [Concomitant]
  2. PROXETIL [Concomitant]
  3. CLONAZEPAM [Concomitant]
  4. CARBAMAZEPINE [Suspect]
     Dates: start: 20060101

REACTIONS (6)
  - RENAL IMPAIRMENT [None]
  - HUMAN HERPES VIRUS 6 SEROLOGY POSITIVE [None]
  - CYTOMEGALOVIRUS TEST POSITIVE [None]
  - HEPATIC FUNCTION ABNORMAL [None]
  - DRUG RASH WITH EOSINOPHILIA AND SYSTEMIC SYMPTOMS [None]
  - DISSEMINATED INTRAVASCULAR COAGULATION [None]
